FAERS Safety Report 6880806-X (Version None)
Quarter: 2010Q3

REPORT INFORMATION
  Report Type: 
  Country: None (occurrence: None)
  Receive Date: 20100728
  Receipt Date: 20100719
  Transmission Date: 20110219
  Serious: Yes (Death, Hospitalization)
  Sender: FDA-Public Use
  Company Number: HU-BRISTOL-MYERS SQUIBB COMPANY-15085939

PATIENT
  Age: 77 Year
  Sex: Male

DRUGS (6)
  1. APIXABAN [Suspect]
     Indication: THROMBOSIS PROPHYLAXIS
     Route: 048
     Dates: start: 20100122
  2. WARFARIN SODIUM [Suspect]
     Indication: THROMBOSIS PROPHYLAXIS
     Route: 048
     Dates: start: 20100122
  3. PLACEBO [Suspect]
     Indication: THROMBOSIS PROPHYLAXIS
     Route: 048
     Dates: start: 20100122
  4. CO-RENITEC [Concomitant]
     Dates: start: 20080101, end: 20100311
  5. ENALAPRIL MALEATE [Concomitant]
     Dates: start: 20080101, end: 20100316
  6. BISOPROLOL [Concomitant]
     Dates: start: 20080101, end: 20100316

REACTIONS (2)
  - GASTROINTESTINAL NECROSIS [None]
  - MESENTERIC ARTERY EMBOLISM [None]
